FAERS Safety Report 22914001 (Version 2)
Quarter: 2024Q1

REPORT INFORMATION
  Report Type: Report from Study
  Country: US (occurrence: US)
  Receive Date: 20230906
  Receipt Date: 20240331
  Transmission Date: 20240410
  Serious: Yes (Hospitalization)
  Sender: FDA-Public Use
  Company Number: US-Merck Healthcare KGaA-2023472199

PATIENT
  Sex: Female
  Weight: 46 kg

DRUGS (1)
  1. MAVENCLAD [Suspect]
     Active Substance: CLADRIBINE
     Indication: Multiple sclerosis
     Dosage: YEAR ONE MONTH ONE THERAPY
     Route: 048
     Dates: start: 20230706

REACTIONS (5)
  - Muscular weakness [Unknown]
  - Dehydration [Unknown]
  - Blood potassium decreased [Unknown]
  - Clostridium difficile infection [Unknown]
  - Fall [Unknown]
